FAERS Safety Report 22032164 (Version 1)
Quarter: 2023Q1

REPORT INFORMATION
  Report Type: Report from Study
  Country: BR (occurrence: BR)
  Receive Date: 20230224
  Receipt Date: 20230224
  Transmission Date: 20230418
  Serious: Yes (Other)
  Sender: FDA-Public Use
  Company Number: BR-JNJFOC-20230245708

PATIENT
  Age: 49 Year
  Sex: Female
  Weight: 61 kg

DRUGS (3)
  1. REMICADE [Suspect]
     Active Substance: INFLIXIMAB
     Indication: Rheumatoid arthritis
     Route: 041
     Dates: start: 20210909
  2. INFLIXIMAB [Suspect]
     Active Substance: INFLIXIMAB
     Indication: Rheumatoid arthritis
     Route: 065
  3. COVID-19 VACCINE [Concomitant]
     Indication: COVID-19 immunisation
     Dates: start: 20211112

REACTIONS (6)
  - Blood pressure increased [Unknown]
  - Throat tightness [Unknown]
  - Infusion related reaction [Unknown]
  - Skin discolouration [Unknown]
  - COVID-19 [Recovered/Resolved]
  - Dengue fever [Not Recovered/Not Resolved]

NARRATIVE: CASE EVENT DATE: 20221210
